FAERS Safety Report 9031700 (Version 1)
Quarter: 2013Q1

REPORT INFORMATION
  Report Type: Spontaneous
  Country: US (occurrence: US)
  Receive Date: 20130124
  Receipt Date: 20130124
  Transmission Date: 20140127
  Serious: Yes (Hospitalization)
  Sender: FDA-Public Use
  Company Number: US-BAYER-2013-008201

PATIENT
  Age: 49 Year
  Sex: Female
  Weight: 61.68 kg

DRUGS (16)
  1. YAZ [Suspect]
  2. OCELLA [Suspect]
  3. WELLBUTRIN [Concomitant]
  4. ADVAIR [Concomitant]
     Indication: ASTHMA
  5. ALBUTEROL [Concomitant]
     Indication: ASTHMA
  6. PREDNISONE [Concomitant]
  7. ERYTHROMYCIN [Concomitant]
  8. BACTRIM DS [Concomitant]
  9. LEVOFLOXACIN [Concomitant]
     Dosage: 500 MG, UNK
  10. IBUPROFEN [Concomitant]
     Dosage: 600 MG, UNK
  11. CHERATUSSIN AC [Concomitant]
     Dosage: 100-10MG
  12. AVELOX [Concomitant]
     Dosage: 400 MG, UNK
  13. ALPRAZOLAM [Concomitant]
     Dosage: 0.25 MG, UNK
  14. SULFAMETHOXAZOLE W/TRIMETHOPRIM [Concomitant]
     Dosage: 800-160MG
  15. VENTOLIN [Concomitant]
  16. ALEVE [Concomitant]

REACTIONS (2)
  - Pulmonary embolism [None]
  - Deep vein thrombosis [None]
